FAERS Safety Report 7240196-X (Version None)
Quarter: 2011Q1

REPORT INFORMATION
  Report Type: 
  Country: None (occurrence: None)
  Receive Date: 20110124
  Receipt Date: 20110111
  Transmission Date: 20110831
  Serious: Yes (Hospitalization)
  Sender: FDA-Public Use
  Company Number: AU-ELI_LILLY_AND_COMPANY-AU201101002517

PATIENT
  Sex: Female

DRUGS (1)
  1. PROZAC [Suspect]
     Indication: DEPRESSION
     Dosage: 20 MG, DAILY (1/D)
     Route: 048
     Dates: start: 20080101, end: 20110110

REACTIONS (8)
  - GRAND MAL CONVULSION [None]
  - MECHANICAL VENTILATION [None]
  - C-REACTIVE PROTEIN ABNORMAL [None]
  - HEART RATE INCREASED [None]
  - BLOOD CALCIUM ABNORMAL [None]
  - BLOOD MAGNESIUM ABNORMAL [None]
  - BLOOD PHOSPHORUS ABNORMAL [None]
  - DRUG EXPOSURE DURING PREGNANCY [None]
